FAERS Safety Report 4592759-8 (Version None)
Quarter: 2005Q1

REPORT INFORMATION
  Report Type: 
  Country: None (occurrence: None)
  Receive Date: 20050218
  Receipt Date: 20050204
  Transmission Date: 20050727
  Serious: Yes (Other)
  Sender: FDA-Public Use
  Company Number: 20040049USST

PATIENT
  Age: 33 Year
  Sex: Male

DRUGS (2)
  1. LEVOCARNITINE [Suspect]
     Indication: MEDICAL DIET
     Dosage: 1000 MG/DAY
     Dates: start: 20030819, end: 20031030
  2. ACENOCUMAROL [Concomitant]

REACTIONS (1)
  - INTERNATIONAL NORMALISED RATIO INCREASED [None]
